FAERS Safety Report 14132319 (Version 3)
Quarter: 2018Q1

REPORT INFORMATION
  Report Type: Spontaneous
  Country: BR (occurrence: BR)
  Receive Date: 20171027
  Receipt Date: 20180124
  Transmission Date: 20180508
  Serious: Yes (Other)
  Sender: FDA-Public Use
  Company Number: BR-AMGEN-BRASP2017146030

PATIENT
  Age: 63 Year
  Sex: Female

DRUGS (1)
  1. ENBREL [Suspect]
     Active Substance: ETANERCEPT
     Indication: RHEUMATOID ARTHRITIS
     Dosage: UNK
     Route: 065
     Dates: start: 20170601

REACTIONS (5)
  - Loss of personal independence in daily activities [Unknown]
  - Limb deformity [Unknown]
  - Gait inability [Unknown]
  - Swelling [Not Recovered/Not Resolved]
  - Drug effect incomplete [Unknown]
